FAERS Safety Report 5015646-X (Version None)
Quarter: 2006Q2

REPORT INFORMATION
  Report Type: 
  Country: None (occurrence: None)
  Receive Date: 20060601
  Receipt Date: 20060503
  Transmission Date: 20061013
  Serious: Yes (Hospitalization, Other)
  Sender: FDA-Public Use
  Company Number: US-GLAXOSMITHKLINE-A0604208A

PATIENT
  Age: 49 Year
  Sex: Female
  Weight: 56 kg

DRUGS (5)
  1. WELLBUTRIN XL [Suspect]
     Indication: DEPRESSION
     Dosage: 600MG PER DAY
     Route: 048
     Dates: start: 20060101, end: 20060331
  2. METOPROLOL [Concomitant]
     Dosage: 50MG TWICE PER DAY
  3. KLONOPIN [Concomitant]
     Dosage: .8MG TWICE PER DAY
  4. GEODON [Concomitant]
     Dosage: 20MG TWICE PER DAY
  5. NORVASC [Concomitant]
     Dosage: 10MG PER DAY
     Route: 048

REACTIONS (4)
  - EYELID FUNCTION DISORDER [None]
  - HALLUCINATION, AUDITORY [None]
  - LOGORRHOEA [None]
  - OVERDOSE [None]
